FAERS Safety Report 17557046 (Version 1)
Quarter: 2020Q1

REPORT INFORMATION
  Report Type: Spontaneous
  Country: US (occurrence: US)
  Receive Date: 20200318
  Receipt Date: 20200318
  Transmission Date: 20200409
  Serious: No
  Sender: FDA-Public Use
  Company Number: US-ASTRAZENECA-2020SE34337

PATIENT
  Sex: Male
  Weight: 85.3 kg

DRUGS (4)
  1. BYDUREON [Suspect]
     Active Substance: EXENATIDE
     Indication: GLYCOSYLATED HAEMOGLOBIN INCREASED
     Route: 065
     Dates: start: 201912
  2. RAMAPRIL [Concomitant]
     Indication: HYPERTENSION
  3. METFORMIN [Concomitant]
     Active Substance: METFORMIN HYDROCHLORIDE
  4. JARDIAN [Concomitant]

REACTIONS (1)
  - Weight decreased [Not Recovered/Not Resolved]
